FAERS Safety Report 22207763 (Version 1)
Quarter: 2023Q2

REPORT INFORMATION
  Report Type: Spontaneous
  Country: GB (occurrence: GB)
  Receive Date: 20230413
  Receipt Date: 20230413
  Transmission Date: 20230721
  Serious: Yes (Other)
  Sender: FDA-Public Use
  Company Number: GB-MHRA-MED-202304111315418360-CJGVZ

PATIENT
  Age: 41 Year
  Sex: Female
  Weight: 65 kg

DRUGS (2)
  1. DOXYCYCLINE [Suspect]
     Active Substance: DOXYCYCLINE
     Dosage: UNK
  2. PENICILLIN V [Concomitant]
     Active Substance: PENICILLIN V
     Indication: Adverse drug reaction
     Dosage: UNK

REACTIONS (11)
  - Localised infection [Not Recovered/Not Resolved]
  - Blister [Not Recovered/Not Resolved]
  - Skin exfoliation [Not Recovered/Not Resolved]
  - Swelling face [Not Recovered/Not Resolved]
  - Pharyngeal swelling [Unknown]
  - Urticaria [Recovered/Resolved]
  - Genital candidiasis [Recovered/Resolved]
  - Oropharyngeal pain [Recovered/Resolved]
  - Dysuria [Unknown]
  - Pharyngeal disorder [Unknown]
  - Peripheral swelling [Unknown]
